FAERS Safety Report 6050189-6 (Version None)
Quarter: 2009Q1

REPORT INFORMATION
  Report Type: 
  Country: None (occurrence: None)
  Receive Date: 20090121
  Receipt Date: 20090121
  Transmission Date: 20090719
  Serious: Yes (Hospitalization)
  Sender: FDA-Public Use
  Company Number: None

PATIENT
  Age: 53 Year
  Sex: Male

DRUGS (1)
  1. METFORMIN HCL [Suspect]
     Indication: DIABETES MELLITUS
     Dosage: 1000 MG BID PO
     Route: 048
     Dates: start: 20070607, end: 20080417

REACTIONS (9)
  - ABDOMINAL PAIN [None]
  - BLOOD GLUCOSE INCREASED [None]
  - BLOOD PRESSURE INCREASED [None]
  - DEPRESSION [None]
  - HEART RATE INCREASED [None]
  - HYPOPHAGIA [None]
  - METABOLIC ACIDOSIS [None]
  - NAUSEA [None]
  - VOMITING [None]
